FAERS Safety Report 8371819-X (Version None)
Quarter: 2012Q2

REPORT INFORMATION
  Report Type: 
  Country: None (occurrence: None)
  Receive Date: 20120518
  Receipt Date: 20120510
  Transmission Date: 20120825
  Serious: Yes (Other)
  Sender: FDA-Public Use
  Company Number: US-ROCHE-1067833

PATIENT
  Sex: Male

DRUGS (2)
  1. COPEGUS [Suspect]
     Indication: HEPATITIS C
     Dates: start: 20110101
  2. PEGASYS [Suspect]
     Indication: HEPATITIS C
     Dates: start: 20110101

REACTIONS (2)
  - TOOTH LOSS [None]
  - WHITE BLOOD CELL COUNT DECREASED [None]
